FAERS Safety Report 11311471 (Version 1)
Quarter: 2015Q3

REPORT INFORMATION
  Report Type: Spontaneous
  Country: FI (occurrence: FI)
  Receive Date: 20150727
  Receipt Date: 20150727
  Transmission Date: 20151125
  Serious: Yes (Life-Threatening, Other)
  Sender: FDA-Public Use
  Company Number: FI-009507513-1507FIN011548

PATIENT
  Age: 14 Year
  Sex: Male

DRUGS (4)
  1. AERIUS [Concomitant]
     Active Substance: DESLORATADINE
     Dosage: 1-2 TABLETS ONCE A DAY
     Route: 048
  2. EMADINE [Concomitant]
     Active Substance: EMEDASTINE DIFUMARATE
     Dosage: 1-2 DROPS TWICE A DAY
  3. AZELASTINE HYDROCHLORIDE. [Concomitant]
     Active Substance: AZELASTINE HYDROCHLORIDE
     Dosage: 125/50 UG, 1-2 SPRAYS 1-2 TIMES PER DAY INTO EACH NOSTRIL
     Route: 045
  4. GRAZAX [Suspect]
     Active Substance: PHLEUM PRATENSE POLLEN
     Indication: PRODUCT USED FOR UNKNOWN INDICATION
     Dosage: 75000 SQ-T, UNKNOWN
     Route: 060
     Dates: start: 20150305, end: 20150322

REACTIONS (12)
  - Tongue pruritus [Recovered/Resolved]
  - Swollen tongue [Recovered/Resolved]
  - Ear pruritus [Recovered/Resolved]
  - Pharyngeal oedema [Recovered/Resolved]
  - Ear pruritus [Recovered/Resolved]
  - Mouth swelling [Recovered/Resolved]
  - Oral pruritus [Recovered/Resolved]
  - Throat irritation [Recovered/Resolved]
  - Throat irritation [Recovered/Resolved]
  - Throat irritation [Recovered/Resolved]
  - Ear swelling [Recovered/Resolved]
  - Oral pruritus [Recovered/Resolved]

NARRATIVE: CASE EVENT DATE: 201503
